FAERS Safety Report 5703960-1 (Version None)
Quarter: 2008Q2

REPORT INFORMATION
  Report Type: 
  Country: None (occurrence: None)
  Receive Date: 20080414
  Receipt Date: 20080401
  Transmission Date: 20081010
  Serious: Yes (Hospitalization)
  Sender: FDA-Public Use
  Company Number: US-TYCO HEALTHCARE/MALLINCKRODT-T200800630

PATIENT

DRUGS (9)
  1. FLUOXETINE [Suspect]
     Indication: FATIGUE
     Dosage: 40 MG, QD
  2. FLUOXETINE [Suspect]
     Dosage: 40 MG, QD
  3. MODAFINIL [Suspect]
     Indication: FATIGUE
     Dosage: 200 MG, UNK
  4. AMANTADINE HCL [Suspect]
     Indication: FATIGUE
     Dosage: 200 MG, UNK
  5. OXYBUTYNIN CHLORIDE [Suspect]
     Indication: AUTOMATIC BLADDER
     Dosage: 10 MG, TID
  6. INTERFERON [Suspect]
     Indication: MULTIPLE SCLEROSIS
     Dosage: EVERY OTHER DAY
  7. LEVOTHYROXINE SODIUM [Suspect]
     Indication: HYPOTHYROIDISM
     Dosage: 88 UG, QD
  8. LEVOTHYROXINE SODIUM [Suspect]
     Dosage: UNK, QD
  9. BACLOFEN [Suspect]

REACTIONS (2)
  - DELIRIUM [None]
  - DRUG WITHDRAWAL SYNDROME [None]
